FAERS Safety Report 12670054 (Version 1)
Quarter: 2016Q3

REPORT INFORMATION
  Report Type: Spontaneous
  Country: US (occurrence: US)
  Receive Date: 20160821
  Receipt Date: 20160821
  Transmission Date: 20161109
  Serious: Yes (Other)
  Sender: FDA-Public Use
  Company Number: US-AMGEN-USASP2016106263

PATIENT
  Age: 74 Year
  Sex: Female

DRUGS (2)
  1. PROLIA [Suspect]
     Active Substance: DENOSUMAB
     Indication: OSTEOPOROSIS POSTMENOPAUSAL
     Dosage: UNK
     Route: 065
  2. METFORMIN [Concomitant]
     Active Substance: METFORMIN HYDROCHLORIDE
     Indication: TYPE 2 DIABETES MELLITUS

REACTIONS (9)
  - Bone loss [Unknown]
  - Muscular weakness [Unknown]
  - Blood pressure abnormal [Unknown]
  - Adrenal insufficiency [Recovered/Resolved]
  - Waist circumference increased [Unknown]
  - Fatigue [Unknown]
  - Benign neoplasm of adrenal gland [Unknown]
  - Weight increased [Unknown]
  - Drug ineffective [Unknown]
